FAERS Safety Report 7645287-7 (Version None)
Quarter: 2011Q3

REPORT INFORMATION
  Report Type: 
  Country: None (occurrence: None)
  Receive Date: 20110729
  Receipt Date: 20110725
  Transmission Date: 20111222
  Serious: Yes (Hospitalization)
  Sender: FDA-Public Use
  Company Number: US-ABBOTT-11P-163-0841238-00

PATIENT
  Sex: Female
  Weight: 93.07 kg

DRUGS (2)
  1. HUMIRA [Suspect]
     Indication: RHEUMATOID ARTHRITIS
     Dates: end: 20110501
  2. HUMIRA [Suspect]
     Dates: start: 20110725

REACTIONS (4)
  - ARTHRALGIA [None]
  - PATELLA FRACTURE [None]
  - CARTILAGE ATROPHY [None]
  - DIABETES MELLITUS [None]
